FAERS Safety Report 17054747 (Version 1)
Quarter: 2019Q4

REPORT INFORMATION
  Report Type: Report from Study
  Country: IT (occurrence: IT)
  Receive Date: 20191120
  Receipt Date: 20191120
  Transmission Date: 20200122
  Serious: Yes (Hospitalization, Other)
  Sender: FDA-Public Use
  Company Number: IT-MYLANLABS-2019M1111555

PATIENT
  Age: 88 Year
  Sex: Female

DRUGS (5)
  1. OMEPRAZOLE. [Concomitant]
     Active Substance: OMEPRAZOLE
  2. PLASIL                             /00041901/ [Concomitant]
     Active Substance: METOCLOPRAMIDE
  3. LANOXIN [Concomitant]
     Active Substance: DIGOXIN
  4. TELMISARTAN. [Concomitant]
     Active Substance: TELMISARTAN
  5. FONDAPARINUX [Suspect]
     Active Substance: FONDAPARINUX
     Indication: PRODUCT USED FOR UNKNOWN INDICATION
     Dosage: UNK

REACTIONS (3)
  - Abdominal pain [Recovering/Resolving]
  - Intra-abdominal haematoma [Recovering/Resolving]
  - Anaemia [Recovering/Resolving]

NARRATIVE: CASE EVENT DATE: 20191003
